FAERS Safety Report 8090193-X (Version None)
Quarter: 2012Q1

REPORT INFORMATION
  Report Type: 
  Country: None (occurrence: None)
  Receive Date: 20120129
  Receipt Date: 20111017
  Transmission Date: 20120608
  Serious: No
  Sender: FDA-Public Use
  Company Number: US-ABBOTT-11P-163-0866683-00

PATIENT
  Sex: Male
  Weight: 73.548 kg

DRUGS (4)
  1. ASACOL [Concomitant]
     Indication: CROHN'S DISEASE
  2. ENTOCORT EC [Concomitant]
     Indication: CROHN'S DISEASE
  3. CIPROFLOXACIN [Concomitant]
     Indication: CROHN'S DISEASE
  4. HUMIRA [Suspect]
     Indication: CROHN'S DISEASE
     Dates: start: 20111014, end: 20111014

REACTIONS (1)
  - MUSCLE SPASMS [None]
